FAERS Safety Report 18540284 (Version 1)
Quarter: 2020Q4

REPORT INFORMATION
  Report Type: Spontaneous
  Country: US (occurrence: US)
  Receive Date: 20201005
  Receipt Date: 20201005
  Transmission Date: 20210114
  Serious: Yes (Other)
  Sender: FDA-Public Use
  Company Number: None

PATIENT
  Age: 53 Year
  Sex: Male

DRUGS (3)
  1. MOXIFLOXACIN. [Suspect]
     Active Substance: MOXIFLOXACIN
     Indication: COVID-19
     Dates: start: 2020
  2. SHUANGHUANGLIAN [Suspect]
     Active Substance: HERBALS
     Indication: COVID-19
     Dates: start: 2020
  3. UMIFENOVIR. [Suspect]
     Active Substance: UMIFENOVIR
     Indication: COVID-19
     Dates: start: 2020

REACTIONS (4)
  - Nausea [None]
  - Diarrhoea [None]
  - Vomiting [None]
  - Off label use [None]
